FAERS Safety Report 10071688 (Version 1)
Quarter: 2014Q2

REPORT INFORMATION
  Report Type: Spontaneous
  Country: GB (occurrence: GB)
  Receive Date: 20140411
  Receipt Date: 20140411
  Transmission Date: 20141212
  Serious: Yes (Death, Life-Threatening)
  Sender: FDA-Public Use
  Company Number: 2014SP001829

PATIENT
  Age: 69 Year
  Sex: Female

DRUGS (17)
  1. VANCOMYCIN [Suspect]
     Indication: SEPSIS
     Route: 041
     Dates: start: 20140108, end: 20140122
  2. CIPROFLOXACIN [Suspect]
     Indication: SEPSIS
     Route: 048
     Dates: start: 20140120, end: 20140122
  3. CIPROFLOXACIN [Suspect]
     Indication: SEPSIS
     Route: 048
     Dates: start: 20140108, end: 20140117
  4. CLARITHROMYCIN [Suspect]
     Indication: PRODUCT USED FOR UNKNOWN INDICATION
     Route: 048
     Dates: start: 20131125, end: 20131201
  5. GENTAMICIN [Suspect]
     Indication: PYELONEPHRITIS
     Route: 040
     Dates: start: 20140106, end: 20140107
  6. TRIMETHOPRIM [Suspect]
     Indication: URINARY TRACT INFECTION
     Route: 048
     Dates: start: 20131230
  7. ASPIRIN [Concomitant]
  8. CARBOCISTEINE [Concomitant]
  9. DIGOXIN [Concomitant]
  10. FERROUS SULPHATE AND FOLIC ACID [Concomitant]
  11. ISOSORBIDE MONONITRATE [Concomitant]
  12. METFORMINE [Concomitant]
  13. MORPHINE [Concomitant]
  14. PIOGLITAZONE [Concomitant]
  15. SIMVASTATIN [Concomitant]
  16. TIOTROPIUM [Concomitant]
  17. TRAMADOL [Concomitant]

REACTIONS (1)
  - Clostridium difficile infection [Fatal]
